FAERS Safety Report 15275070 (Version 1)
Quarter: 2018Q3

REPORT INFORMATION
  Report Type: Spontaneous
  Country: US (occurrence: US)
  Receive Date: 20180727
  Receipt Date: 20180727
  Transmission Date: 20181010
  Serious: No
  Sender: FDA-Public Use
  Company Number: None

PATIENT
  Age: 30 Year
  Sex: Male
  Weight: 69.75 kg

DRUGS (1)
  1. LAMOTRIGINE. [Suspect]
     Active Substance: LAMOTRIGINE
     Indication: ONYCHOMYCOSIS
     Dosage: ?          QUANTITY:30 TABLET(S);?
     Dates: start: 20180724, end: 20180725

REACTIONS (4)
  - Wrong drug administered [None]
  - Sedation [None]
  - Dizziness [None]
  - Drug dispensing error [None]

NARRATIVE: CASE EVENT DATE: 20180723
